FAERS Safety Report 23850970 (Version 3)
Quarter: 2024Q2

REPORT INFORMATION
  Report Type: Spontaneous
  Country: US (occurrence: US)
  Receive Date: 20240514
  Receipt Date: 20240610
  Transmission Date: 20240716
  Serious: No
  Sender: FDA-Public Use
  Company Number: US-002147023-NVSC2024US095299

PATIENT
  Age: 42 Year

DRUGS (1)
  1. KESIMPTA [Suspect]
     Active Substance: OFATUMUMAB
     Indication: Multiple sclerosis
     Dosage: UNK
     Route: 065

REACTIONS (6)
  - Nasopharyngitis [Unknown]
  - Pyrexia [Recovering/Resolving]
  - Limb discomfort [Unknown]
  - Paraesthesia [Unknown]
  - Feeling abnormal [Unknown]
  - Pain in extremity [Unknown]
